FAERS Safety Report 4654074-3 (Version None)
Quarter: 2005Q2

REPORT INFORMATION
  Report Type: 
  Country: None (occurrence: None)
  Receive Date: 20050504
  Receipt Date: 20000928
  Transmission Date: 20051028
  Serious: Yes (Death)
  Sender: FDA-Public Use
  Company Number: DSA_26299_2005

PATIENT
  Age: 28 Year
  Sex: Male
  Weight: 34 kg

DRUGS (10)
  1. ENALAPRIL MALEATE [Suspect]
     Indication: CARDIAC FAILURE CONGESTIVE
     Dosage: 10 MG Q DAY PO
     Route: 048
     Dates: start: 19980314, end: 19980521
  2. CAPTOPRIL [Suspect]
     Indication: CARDIAC FAILURE CONGESTIVE
     Dosage: 15 MG TID PO
     Route: 048
     Dates: start: 19940909, end: 19980313
  3. BUFFERIN [Suspect]
     Indication: CARDIAC FAILURE CONGESTIVE
     Dosage: 81 MG Q DAY PO
     Route: 048
     Dates: start: 19980108, end: 19980521
  4. ALDACTONE [Suspect]
     Indication: CARDIAC FAILURE CONGESTIVE
     Dosage: 25 MG Q DAY PO
     Route: 048
     Dates: start: 19980314, end: 19980521
  5. LASIX [Concomitant]
  6. GASTER [Concomitant]
  7. KAKODIN [Concomitant]
  8. LANIRAPID [Concomitant]
  9. MEXITIL [Concomitant]
  10. MILRILA [Concomitant]

REACTIONS (33)
  - ABDOMINAL DISCOMFORT [None]
  - ADRENAL INSUFFICIENCY [None]
  - ALANINE AMINOTRANSFERASE INCREASED [None]
  - ANURIA [None]
  - BLOOD ALDOSTERONE INCREASED [None]
  - BLOOD CHLORIDE DECREASED [None]
  - BLOOD CORTICOTROPHIN INCREASED [None]
  - BLOOD CREATININE DECREASED [None]
  - BLOOD GLUCOSE INCREASED [None]
  - BLOOD POTASSIUM DECREASED [None]
  - BLOOD PRESSURE SYSTOLIC DECREASED [None]
  - BLOOD SODIUM INCREASED [None]
  - BLOOD UREA INCREASED [None]
  - ELECTROLYTE IMBALANCE [None]
  - EOSINOPHIL COUNT INCREASED [None]
  - HAEMATOCRIT DECREASED [None]
  - HAEMOGLOBIN DECREASED [None]
  - HEART RATE INCREASED [None]
  - HYPERKALAEMIA [None]
  - INTRACARDIAC THROMBUS [None]
  - LYMPHOCYTE COUNT DECREASED [None]
  - METABOLIC ACIDOSIS [None]
  - MONOCYTE COUNT DECREASED [None]
  - MYDRIASIS [None]
  - NEUTROPHIL PERCENTAGE INCREASED [None]
  - PLATELET COUNT DECREASED [None]
  - PROTEIN TOTAL INCREASED [None]
  - RED BLOOD CELL COUNT DECREASED [None]
  - RENIN INCREASED [None]
  - SHOCK [None]
  - THERAPY NON-RESPONDER [None]
  - VENTRICULAR FIBRILLATION [None]
  - WHITE BLOOD CELL COUNT INCREASED [None]
